FAERS Safety Report 17695460 (Version 2)
Quarter: 2020Q2

REPORT INFORMATION
  Report Type: Report from Study
  Country: US (occurrence: US)
  Receive Date: 20200423
  Receipt Date: 20200525
  Transmission Date: 20200714
  Serious: No
  Sender: FDA-Public Use
  Company Number: US-INCYTE CORPORATION-2020IN003611

PATIENT

DRUGS (2)
  1. JAKAFI [Suspect]
     Active Substance: RUXOLITINIB
     Indication: MYELOFIBROSIS
     Dosage: 20 MILLIGRAM, BID
     Route: 048
     Dates: end: 20200428
  2. JAKAFI [Suspect]
     Active Substance: RUXOLITINIB
     Dosage: 20 MILLIGRAM, BID
     Route: 048
     Dates: start: 20200508

REACTIONS (9)
  - Weight increased [Unknown]
  - Insomnia [Unknown]
  - Pain [Unknown]
  - Decreased activity [Unknown]
  - Pruritus [Unknown]
  - Bone pain [Unknown]
  - Feeling hot [Unknown]
  - Hyperhidrosis [Unknown]
  - General physical condition abnormal [Unknown]
